FAERS Safety Report 8579704 (Version 3)
Quarter: 2013Q4

REPORT INFORMATION
  Report Type: Spontaneous
  Country: US (occurrence: US)
  Receive Date: 20120525
  Receipt Date: 20131105
  Transmission Date: 20140711
  Serious: Yes (Hospitalization, Disabling)
  Sender: FDA-Public Use
  Company Number: US-BAYER-2012-050696

PATIENT
  Age: 30 Year
  Sex: Female
  Weight: 72.56 kg

DRUGS (9)
  1. YAZ [Suspect]
     Indication: CONTRACEPTION
     Dosage: UNK
     Dates: start: 2005, end: 2010
  2. YAZ [Suspect]
     Indication: PREMENSTRUAL DYSPHORIC DISORDER
  3. YAZ [Suspect]
     Indication: PREMENSTRUAL SYNDROME
  4. GLUCOVANCE [Concomitant]
     Indication: DIABETES MELLITUS
  5. AVANDIA [Concomitant]
     Indication: DIABETES MELLITUS
     Dosage: 4 MG, QD
     Route: 048
  6. ASPIRIN [Concomitant]
     Dosage: 81 MG, QD
     Route: 048
  7. ZOCOR [Concomitant]
     Dosage: 20 MG, QD
     Route: 048
  8. LISINOPRIL [Concomitant]
     Indication: HYPERTENSION
     Dosage: 10 MG, QD
     Route: 048
  9. TORADOL [Concomitant]
     Dosage: 10 MILLIGRAMS EVERY 6 HOURS AS NEEDED

REACTIONS (7)
  - Cholelithiasis [None]
  - Abdominal pain [None]
  - Cholecystitis acute [None]
  - Injury [None]
  - Deformity [None]
  - Anxiety [None]
  - Anhedonia [None]
